FAERS Safety Report 17516825 (Version 1)
Quarter: 2020Q1

REPORT INFORMATION
  Report Type: Spontaneous
  Country: IR (occurrence: IR)
  Receive Date: 20200309
  Receipt Date: 20200309
  Transmission Date: 20200409
  Serious: Yes (Death, Hospitalization, Other)
  Sender: FDA-Public Use
  Company Number: IR-CASPER PHARMA LLC-2020CAS000092

PATIENT
  Age: 2 Year
  Sex: Male

DRUGS (2)
  1. ONDANSETRON [Concomitant]
     Active Substance: ONDANSETRON
     Indication: GASTROENTERITIS
     Dosage: UNK
     Route: 065
  2. BISMUTH, METRONIDAZOLE, TETRACYCLIN [Suspect]
     Active Substance: BISMUTH SUBSALICYLATE\METRONIDAZOLE\TETRACYCLINE HYDROCHLORIDE
     Indication: GASTROENTERITIS
     Dosage: UNK
     Route: 065

REACTIONS (1)
  - Hepatic failure [Fatal]
